FAERS Safety Report 17925933 (Version 1)
Quarter: 2020Q2

REPORT INFORMATION
  Report Type: Spontaneous
  Country: US (occurrence: US)
  Receive Date: 20200622
  Receipt Date: 20200622
  Transmission Date: 20200714
  Serious: Yes (Other)
  Sender: FDA-Public Use
  Company Number: US-HLS-202000623

PATIENT
  Sex: Female

DRUGS (1)
  1. CLOZARIL [Suspect]
     Active Substance: CLOZAPINE
     Indication: SCHIZOAFFECTIVE DISORDER
     Dosage: STARTED AT LOW DOSAGE, 25, THEN IT WAS 50 AND SO ON. ?300MG FOR 7 TO 8 WEEKS NOW.
     Route: 065
     Dates: start: 202002

REACTIONS (1)
  - Suicidal ideation [Unknown]
